FAERS Safety Report 6686022-9 (Version None)
Quarter: 2010Q2

REPORT INFORMATION
  Report Type: 
  Country: None (occurrence: None)
  Receive Date: 20100415
  Receipt Date: 20100415
  Transmission Date: 20101027
  Serious: Yes (Life-Threatening, Hospitalization)
  Sender: FDA-Public Use
  Company Number: None

PATIENT
  Age: 21 Year
  Sex: Female
  Weight: 73.9363 kg

DRUGS (2)
  1. YAZ [Suspect]
     Indication: ACNE
     Dosage: 1 PILL DAILY PO
     Route: 048
     Dates: start: 20100301, end: 20100408
  2. YAZ [Suspect]
     Indication: DYSMENORRHOEA
     Dosage: 1 PILL DAILY PO
     Route: 048
     Dates: start: 20100301, end: 20100408

REACTIONS (1)
  - ISCHAEMIC STROKE [None]
